FAERS Safety Report 6468679-0 (Version None)
Quarter: 2009Q4

REPORT INFORMATION
  Report Type: 
  Country: None (occurrence: None)
  Receive Date: 20091203
  Receipt Date: 20091125
  Transmission Date: 20100525
  Serious: Yes (Hospitalization)
  Sender: FDA-Public Use
  Company Number: IT-ROCHE-669889

PATIENT
  Sex: Male

DRUGS (3)
  1. TAMIFLU [Suspect]
     Route: 048
     Dates: start: 20091105, end: 20091107
  2. CLARITHROMYCIN [Suspect]
     Dosage: FORM: SACHET.
     Route: 048
     Dates: start: 20091105, end: 20091107
  3. TACHIPIRINA [Concomitant]

REACTIONS (2)
  - PRURITUS GENERALISED [None]
  - RASH [None]
